FAERS Safety Report 10404222 (Version 2)
Quarter: 2014Q1

REPORT INFORMATION
  Report Type: Spontaneous
  Country: US (occurrence: None)
  Receive Date: 20140128
  Receipt Date: 20140128
  Transmission Date: 20141002
  Serious: Yes (Hospitalization)
  Sender: FDA-Public Use
  Company Number: A-US2011-55955

PATIENT
  Age: 86 Year
  Sex: Female

DRUGS (12)
  1. TRACLEER (BOSENTAN) TABLET [Suspect]
     Indication: PULMONARY ARTERIAL HYPERTENSION
     Route: 048
     Dates: start: 201108
  2. CARTIA XT (DILTIAZEM HYDROCHLORIDE) [Concomitant]
  3. PLAVIX (CLOPIDOGREL BISULFATE) (CLOPIDOGREL BISULFATE) [Concomitant]
  4. ZANTAC (RANITIDINE HYDROCHLORIDE) [Concomitant]
  5. FLUDROCORTISONE (FLUDROCORTISONE) [Concomitant]
  6. PREDNISONE  (PREDNISONE) [Concomitant]
  7. SIMVASTATIN (SIMVASTATIN) [Concomitant]
  8. ASPIRIN (ACETYLSALICYLIC ACID) [Concomitant]
  9. VITAMIN D (COLECALCIFEROL) [Concomitant]
  10. POTASSIUM (POTASSIUM) [Concomitant]
  11. CALCIUM (CALCIUM) [Concomitant]
  12. FUROSEMIDE (FUROSEMIDE SODIUM) [Concomitant]

REACTIONS (1)
  - Haemoglobin decreased [None]
